FAERS Safety Report 9465482 (Version 4)
Quarter: 2013Q3

REPORT INFORMATION
  Report Type: Report from Study
  Country: CA (occurrence: CA)
  Receive Date: 20130820
  Receipt Date: 20130828
  Transmission Date: 20140515
  Serious: Yes (Death, Hospitalization, Other)
  Sender: FDA-Public Use
  Company Number: PHHY2013CA022895

PATIENT
  Age: 89 Year
  Sex: Female

DRUGS (5)
  1. SANDOSTATIN LAR [Suspect]
     Indication: CARCINOID SYNDROME
     Dosage: 40 MG, ONCE A MONTH
     Route: 030
     Dates: start: 20100710
  2. SANDOSTATIN LAR [Suspect]
     Dosage: 40 MG, ONCE A MONTH
     Route: 030
     Dates: start: 20101007
  3. SANDOSTATIN LAR [Suspect]
     Dosage: 40 MG, EVERY FOUR WEEKS
     Route: 030
  4. SANDOSTATIN LAR [Suspect]
     Dosage: 40 MG, ONCE A MONTH
     Route: 030
  5. SANDOSTATIN LAR [Suspect]
     Dosage: 40 MG, ONCE A MONTH
     Route: 030
     Dates: end: 20130719

REACTIONS (8)
  - Death [Fatal]
  - Urinary tract infection [Unknown]
  - Blood pressure increased [Unknown]
  - Diarrhoea [Unknown]
  - Hypophagia [Unknown]
  - Confusional state [Unknown]
  - Headache [Unknown]
  - Dyspepsia [Unknown]
